FAERS Safety Report 15049396 (Version 2)
Quarter: 2018Q3

REPORT INFORMATION
  Report Type: Spontaneous
  Country: US (occurrence: US)
  Receive Date: 20180622
  Receipt Date: 20180710
  Transmission Date: 20181010
  Serious: No
  Sender: FDA-Public Use
  Company Number: US-009507513-1805USA012024

PATIENT
  Age: 36 Year
  Sex: Female
  Weight: 164 kg

DRUGS (2)
  1. NEXPLANON [Suspect]
     Active Substance: ETONOGESTREL
     Dosage: 1 IMPLANT (UNIT)
     Route: 059
     Dates: start: 201511
  2. IMPLANON [Suspect]
     Active Substance: ETONOGESTREL
     Dosage: 1 IMPLANT (UNIT)
     Route: 059
     Dates: start: 201511

REACTIONS (2)
  - Device breakage [Not Recovered/Not Resolved]
  - Feeling abnormal [Unknown]
